FAERS Safety Report 18318941 (Version 1)
Quarter: 2020Q3

REPORT INFORMATION
  Report Type: Spontaneous
  Country: KZ (occurrence: KZ)
  Receive Date: 20200928
  Receipt Date: 20200928
  Transmission Date: 20201103
  Serious: Yes (Other)
  Sender: FDA-Public Use
  Company Number: KZ-JNJFOC-20200939969

PATIENT
  Age: 19 Year
  Sex: Male

DRUGS (1)
  1. XARELTO [Suspect]
     Active Substance: RIVAROXABAN
     Indication: COVID-19
     Dosage: UNK
     Route: 048
     Dates: end: 20200819

REACTIONS (6)
  - Haematuria [Unknown]
  - Off label use [Unknown]
  - Pyrexia [Recovered/Resolved]
  - Swelling face [Recovered/Resolved]
  - Proteinuria [Unknown]
  - Product use in unapproved indication [Unknown]
